FAERS Safety Report 16246817 (Version 2)
Quarter: 2019Q3

REPORT INFORMATION
  Report Type: Spontaneous
  Country: PL (occurrence: PL)
  Receive Date: 20190427
  Receipt Date: 20190730
  Transmission Date: 20191004
  Serious: Yes (Death, Life-Threatening, Hospitalization, Other)
  Sender: FDA-Public Use
  Company Number: PL-ACCORD-124114

PATIENT
  Age: 67 Year
  Sex: Female
  Weight: 95 kg

DRUGS (2)
  1. PACLITAXEL ACCORD [Suspect]
     Active Substance: PACLITAXEL
     Indication: BREAST CANCER
     Dosage: STRENGTH: 6 MG/ML
     Route: 042
     Dates: start: 20190103, end: 20190103
  2. PACLITAXEL ACCORD [Suspect]
     Active Substance: PACLITAXEL
     Indication: BREAST CANCER
     Dosage: DOSE: 120 MG
     Route: 042
     Dates: start: 20190103, end: 20190103

REACTIONS (8)
  - Neutropenia [Fatal]
  - Hepatic failure [Fatal]
  - Asthenia [Recovering/Resolving]
  - Respiratory failure [Fatal]
  - Anaemia [Fatal]
  - Thrombocytopenia [Fatal]
  - Respiratory arrest [Fatal]
  - Epistaxis [Recovering/Resolving]

NARRATIVE: CASE EVENT DATE: 20190110
